FAERS Safety Report 9061720 (Version 1)
Quarter: 2013Q1

REPORT INFORMATION
  Report Type: Spontaneous
  Country: US (occurrence: None)
  Receive Date: 20130122
  Receipt Date: 20130122
  Transmission Date: 20140127
  Serious: Yes (Life-Threatening)
  Sender: FDA-Public Use
  Company Number: 001460456A

PATIENT
  Sex: Female

DRUGS (3)
  1. PROACTIV RENEWING CLEANSER [Suspect]
     Indication: ACNE
     Dosage: ONCE DAILY DERMAL
     Route: 023
     Dates: start: 20121101, end: 20121107
  2. PROACTIV REPAIRING TREATMENT [Suspect]
     Indication: ACNE
     Dosage: ONE DAILY DERMAL
     Route: 023
     Dates: start: 20121101, end: 20121107
  3. PROACTIV DARK SPOT CORRECTOR [Suspect]
     Indication: ACNE
     Dosage: ONCE DAILY DERMAL
     Route: 023
     Dates: start: 20121101, end: 20121107

REACTIONS (3)
  - Rash [None]
  - Throat tightness [None]
  - Anaphylactic reaction [None]
